FAERS Safety Report 7595817-9 (Version None)
Quarter: 2011Q3

REPORT INFORMATION
  Report Type: 
  Country: None (occurrence: None)
  Receive Date: 20110707
  Receipt Date: 20110705
  Transmission Date: 20111222
  Serious: No
  Sender: FDA-Public Use
  Company Number: US-PFIZER INC-2011151712

PATIENT
  Sex: Male

DRUGS (2)
  1. TEGRETOL-XR [Concomitant]
     Indication: EPILEPSY
     Dosage: 400 MG, 3X/DAY
     Dates: start: 20100901
  2. DILANTIN-125 [Suspect]
     Dosage: 500 MG, DAILY
     Route: 048
     Dates: start: 20100901

REACTIONS (3)
  - SOMNOLENCE [None]
  - DRUG EFFECT INCREASED [None]
  - DIZZINESS [None]
